FAERS Safety Report 14230059 (Version 1)
Quarter: 2017Q4

REPORT INFORMATION
  Report Type: Report from Study
  Country: None (occurrence: US)
  Receive Date: 20171128
  Receipt Date: 20171128
  Transmission Date: 20180321
  Serious: Yes (Other)
  Sender: FDA-Public Use
  Company Number: US-ABBVIE-17K-163-1918418-00

PATIENT
  Age: 54 Year
  Sex: Male

DRUGS (1)
  1. HUMIRA [Suspect]
     Active Substance: ADALIMUMAB
     Indication: COLITIS ULCERATIVE
     Route: 058

REACTIONS (8)
  - Diarrhoea [Not Recovered/Not Resolved]
  - Injection site rash [Recovered/Resolved]
  - Cataract [Recovering/Resolving]
  - Corneal transplant [Recovering/Resolving]
  - Blindness [Recovering/Resolving]
  - Uveitis [Unknown]
  - Surgical failure [Unknown]
  - Injection site erythema [Recovered/Resolved]

NARRATIVE: CASE EVENT DATE: 2016
